FAERS Safety Report 10050231 (Version 1)
Quarter: 2014Q1

REPORT INFORMATION
  Report Type: Spontaneous
  Country: US (occurrence: None)
  Receive Date: 20140331
  Receipt Date: 20140331
  Transmission Date: 20141002
  Serious: Yes (Life-Threatening, Hospitalization, Disabling)
  Sender: FDA-Public Use
  Company Number: None

PATIENT
  Age: 52 Year
  Sex: Female
  Weight: 69.85 kg

DRUGS (1)
  1. RANEXA [Suspect]
     Route: 048

REACTIONS (3)
  - Dizziness [None]
  - Nausea [None]
  - Cerebrovascular accident [None]
